FAERS Safety Report 7939740-6 (Version None)
Quarter: 2011Q4

REPORT INFORMATION
  Report Type: 
  Country: None (occurrence: None)
  Receive Date: 20111125
  Receipt Date: 20111118
  Transmission Date: 20120403
  Serious: Yes (Other)
  Sender: FDA-Public Use
  Company Number: PHHY2009TW61126

PATIENT
  Sex: Female

DRUGS (1)
  1. GLEEVEC [Suspect]
     Indication: CHRONIC MYELOID LEUKAEMIA
     Dosage: 400 MG
     Route: 048

REACTIONS (7)
  - RETINAL HAEMORRHAGE [None]
  - CONJUNCTIVAL HAEMORRHAGE [None]
  - BREAST CYST [None]
  - MALAISE [None]
  - EYE HAEMORRHAGE [None]
  - MUSCLE SPASMS [None]
  - RASH [None]
